FAERS Safety Report 6148438-9 (Version None)
Quarter: 2009Q2

REPORT INFORMATION
  Report Type: 
  Country: None (occurrence: None)
  Receive Date: 20090408
  Receipt Date: 20090309
  Transmission Date: 20091009
  Serious: No
  Sender: FDA-Public Use
  Company Number: US-BAYER-200910057BCC

PATIENT
  Age: 35 Year
  Sex: Female
  Weight: 54 kg

DRUGS (2)
  1. ALEVE [Suspect]
     Indication: SINUS HEADACHE
     Dosage: TOTAL DAILY DOSE: 1 DF  UNIT DOSE: 1 DF
     Dates: start: 20090105, end: 20090105
  2. AMOXICILLIN [Concomitant]

REACTIONS (2)
  - EYE SWELLING [None]
  - URTICARIA [None]
